FAERS Safety Report 7509268-6 (Version None)
Quarter: 2011Q2

REPORT INFORMATION
  Report Type: 
  Country: None (occurrence: None)
  Receive Date: 20110527
  Receipt Date: 20110516
  Transmission Date: 20111010
  Serious: Yes (Life-Threatening, Hospitalization, Other)
  Sender: FDA-Public Use
  Company Number: US-ROCHE-777337

PATIENT
  Age: 82 Year
  Sex: Male

DRUGS (2)
  1. ISOTRETINOIN [Suspect]
     Dosage: DISCONTINUED.
     Route: 048
  2. WARFARIN SODIUM [Interacting]
     Route: 065

REACTIONS (10)
  - DISTURBANCE IN ATTENTION [None]
  - PRURITUS [None]
  - DRUG INTERACTION [None]
  - PERSONALITY CHANGE [None]
  - DRY EYE [None]
  - LIP DRY [None]
  - CARDIAC FAILURE CONGESTIVE [None]
  - IRRITABILITY [None]
  - THROMBOSIS [None]
  - EPISTAXIS [None]
